FAERS Safety Report 18333662 (Version 1)
Quarter: 2020Q4

REPORT INFORMATION
  Report Type: Spontaneous
  Country: IT (occurrence: IT)
  Receive Date: 20201001
  Receipt Date: 20201001
  Transmission Date: 20210113
  Serious: Yes (Life-Threatening, Hospitalization, Other)
  Sender: FDA-Public Use
  Company Number: IT-MACLEODS PHARMACEUTICALS US LTD-MAC2020028226

PATIENT

DRUGS (1)
  1. QUETIAPINE 400 MG EXTENDED RELEASE [Suspect]
     Active Substance: QUETIAPINE
     Indication: PRODUCT USED FOR UNKNOWN INDICATION
     Dosage: 120 DOSAGE FORM, SINGLE (TOTAL)
     Route: 048

REACTIONS (8)
  - Toxicity to various agents [Recovering/Resolving]
  - Electrocardiogram QT prolonged [Unknown]
  - Gastric perforation [Unknown]
  - Coma [Unknown]
  - Hypotension [Unknown]
  - Intentional overdose [Recovering/Resolving]
  - Tachycardia [Unknown]
  - Bezoar [Recovering/Resolving]
